FAERS Safety Report 17775400 (Version 3)
Quarter: 2021Q2

REPORT INFORMATION
  Report Type: Report from Study
  Country: US (occurrence: US)
  Receive Date: 20200513
  Receipt Date: 20210507
  Transmission Date: 20210716
  Serious: No
  Sender: FDA-Public Use
  Company Number: US-ACADIA PHARMACEUTICALS INC.-ACA-2020-PIM-000770

PATIENT
  Age: 75 Year
  Sex: Male

DRUGS (6)
  1. NUPLAZID [Suspect]
     Active Substance: PIMAVANSERIN TARTRATE
     Indication: HALLUCINATION
     Dosage: 34 MILLIGRAM, QD
     Route: 048
     Dates: end: 202012
  2. NUPLAZID [Suspect]
     Active Substance: PIMAVANSERIN TARTRATE
     Indication: DELUSION
  3. NUPLAZID [Suspect]
     Active Substance: PIMAVANSERIN TARTRATE
     Indication: PARKINSON^S DISEASE PSYCHOSIS
     Dosage: 34 MILLIGRAM
     Route: 048
     Dates: start: 201907
  4. NUPLAZID [Suspect]
     Active Substance: PIMAVANSERIN TARTRATE
     Indication: PARKINSON^S DISEASE PSYCHOSIS
     Dosage: 10 MILLIGRAM
     Route: 065
     Dates: start: 20200211
  5. NUPLAZID [Suspect]
     Active Substance: PIMAVANSERIN TARTRATE
     Dosage: 20 MILLIGRAM, QD
     Route: 048
     Dates: start: 2020
  6. NUPLAZID [Suspect]
     Active Substance: PIMAVANSERIN TARTRATE
     Dosage: 20 MILLIGRAM, QD
     Route: 048
     Dates: start: 20200424, end: 2020

REACTIONS (4)
  - Product dose omission issue [Unknown]
  - Fatigue [Recovered/Resolved]
  - Adverse drug reaction [Unknown]
  - Prescribed underdose [Unknown]

NARRATIVE: CASE EVENT DATE: 2020
